FAERS Safety Report 24294089 (Version 2)
Quarter: 2025Q3

REPORT INFORMATION
  Report Type: Spontaneous
  Country: US (occurrence: US)
  Receive Date: 20240906
  Receipt Date: 20250905
  Transmission Date: 20251021
  Serious: No
  Sender: DOMPE FARMACEUTICI
  Company Number: US-FARMAPROD-202308-202404-1364

PATIENT
  Sex: Female
  Weight: 47.54 kg

DRUGS (18)
  1. OXERVATE [Suspect]
     Active Substance: CENEGERMIN-BKBJ
     Indication: Neurotrophic keratopathy
     Route: 047
     Dates: start: 20240409, end: 20240603
  2. OXERVATE [Suspect]
     Active Substance: CENEGERMIN-BKBJ
     Dates: start: 20250219
  3. MURO-128 [Concomitant]
  4. BOTOX [Concomitant]
     Active Substance: ONABOTULINUMTOXINA
  5. CLONAZEPAM [Concomitant]
     Active Substance: CLONAZEPAM
  6. BELSOMRA [Concomitant]
     Active Substance: SUVOREXANT
  7. HUMALOG [Concomitant]
     Active Substance: INSULIN LISPRO
  8. BAQSIMI [Concomitant]
     Active Substance: GLUCAGON
  9. POTASSIUM CHLORIDE [Concomitant]
     Active Substance: POTASSIUM CHLORIDE
  10. SOLIFENACIN SUCCINATE [Concomitant]
     Active Substance: SOLIFENACIN SUCCINATE
  11. NAPROXEN [Concomitant]
     Active Substance: NAPROXEN
  12. FUROSEMIDE [Concomitant]
     Active Substance: FUROSEMIDE
  13. NURTEC ODT [Concomitant]
     Active Substance: RIMEGEPANT SULFATE
  14. TOUJEO MAX [Concomitant]
     Active Substance: INSULIN GLARGINE
  15. GVOKE HYPOPEN 2-PACK [Concomitant]
  16. EMGALITY [Concomitant]
     Active Substance: GALCANEZUMAB-GNLM
  17. ZALEPLON [Concomitant]
     Active Substance: ZALEPLON
  18. LUBRICATING DROPS [Concomitant]

REACTIONS (8)
  - Eye swelling [Unknown]
  - Foreign body sensation in eyes [Unknown]
  - Vision blurred [Recovering/Resolving]
  - Overdose [Unknown]
  - Device use issue [Unknown]
  - Intentional product misuse [Unknown]
  - Dry eye [Unknown]
  - Illness [Unknown]
